FAERS Safety Report 16306132 (Version 1)
Quarter: 2019Q2

REPORT INFORMATION
  Report Type: Report from Study
  Country: US (occurrence: US)
  Receive Date: 20190513
  Receipt Date: 20190513
  Transmission Date: 20190711
  Serious: Yes (Other)
  Sender: FDA-Public Use
  Company Number: US-JNJFOC-20190503774

PATIENT
  Age: 65 Year
  Sex: Female

DRUGS (12)
  1. CITALOPRAM [Concomitant]
     Active Substance: CITALOPRAM HYDROBROMIDE
  2. CLONIDINE HYDROCHLORIDE. [Concomitant]
     Active Substance: CLONIDINE HYDROCHLORIDE
  3. MONTELUKAST [Concomitant]
     Active Substance: MONTELUKAST SODIUM
  4. ACYCLOVIR. [Concomitant]
     Active Substance: ACYCLOVIR
  5. TREMFYA [Suspect]
     Active Substance: GUSELKUMAB
     Indication: PSORIASIS
     Route: 058
     Dates: start: 20181120
  6. VENTOLIN [Concomitant]
     Active Substance: ALBUTEROL SULFATE
  7. VITAMIN D [Concomitant]
     Active Substance: VITAMIN D NOS
  8. BENAZEPRIL [Concomitant]
     Active Substance: BENAZEPRIL HYDROCHLORIDE
  9. FLOVENT [Concomitant]
     Active Substance: FLUTICASONE PROPIONATE
  10. MELOXICAM. [Concomitant]
     Active Substance: MELOXICAM
  11. PRAVASTATIN. [Concomitant]
     Active Substance: PRAVASTATIN
  12. CALCIUM [Concomitant]
     Active Substance: CALCIUM

REACTIONS (3)
  - Asthma [Not Recovered/Not Resolved]
  - Condition aggravated [Not Recovered/Not Resolved]
  - Paraesthesia [Recovered/Resolved]

NARRATIVE: CASE EVENT DATE: 20181120
